FAERS Safety Report 8530953-1 (Version None)
Quarter: 2012Q3

REPORT INFORMATION
  Report Type: 
  Country: None (occurrence: None)
  Receive Date: 20120710
  Receipt Date: 20120628
  Transmission Date: 20120928
  Serious: Yes (Other)
  Sender: FDA-Public Use
  Company Number: ADR-2012-01231

PATIENT
  Sex: Male

DRUGS (2)
  1. LIORESAL [Suspect]
     Indication: CEREBROVASCULAR ACCIDENT
     Dosage: 3 MCG/DAY
  2. LIORESAL [Suspect]
     Indication: MUSCLE SPASTICITY
     Dosage: 3 MCG/DAY

REACTIONS (7)
  - INSOMNIA [None]
  - CONSTIPATION [None]
  - HEADACHE [None]
  - PAIN IN EXTREMITY [None]
  - DEPRESSION [None]
  - DIPLEGIA [None]
  - ABASIA [None]
